FAERS Safety Report 18331172 (Version 2)
Quarter: 2020Q4

REPORT INFORMATION
  Report Type: Spontaneous
  Country: US (occurrence: US)
  Receive Date: 20200930
  Receipt Date: 20201006
  Transmission Date: 20210113
  Serious: Yes (Other)
  Sender: FDA-Public Use
  Company Number: US-PFIZER INC-2020374875

PATIENT
  Sex: Female

DRUGS (2)
  1. CELONTIN [Suspect]
     Active Substance: METHSUXIMIDE
     Dosage: 300 MG, 3X/DAY (TAKE 1 CAPSULE, 3 TIMES A DAY)
     Route: 048
  2. CELONTIN [Suspect]
     Active Substance: METHSUXIMIDE
     Dosage: UNK
     Dates: start: 1958

REACTIONS (3)
  - Seizure [Unknown]
  - Dehydration [Unknown]
  - Illness [Unknown]
